FAERS Safety Report 8616451 (Version 2)
Quarter: 2013Q2

REPORT INFORMATION
  Report Type: Spontaneous
  Country: US (occurrence: US)
  Receive Date: 20120615
  Receipt Date: 20130617
  Transmission Date: 20140414
  Serious: Yes (Hospitalization)
  Sender: FDA-Public Use
  Company Number: US-ASTRAZENECA-2012SE36217

PATIENT
  Age: 24844 Day
  Sex: Male
  Weight: 65.3 kg

DRUGS (32)
  1. NEXIUM [Suspect]
     Indication: GASTROOESOPHAGEAL REFLUX DISEASE
     Route: 048
     Dates: start: 20050605, end: 201204
  2. NEXIUM [Suspect]
     Indication: GASTROOESOPHAGEAL REFLUX DISEASE
     Route: 048
     Dates: start: 20070709
  3. PRILOSEC [Suspect]
     Indication: GASTROOESOPHAGEAL REFLUX DISEASE
     Route: 048
     Dates: start: 199604, end: 201107
  4. PRILOSEC [Suspect]
     Indication: GASTROOESOPHAGEAL REFLUX DISEASE
     Route: 048
     Dates: start: 20010713
  5. PRILOSEC [Suspect]
     Indication: GASTROOESOPHAGEAL REFLUX DISEASE
     Route: 048
     Dates: start: 20120405
  6. LANSOPRAZOLE [Concomitant]
     Indication: GASTROOESOPHAGEAL REFLUX DISEASE
     Dates: start: 200401, end: 200411
  7. RABEPRAZOLE [Concomitant]
     Indication: GASTROOESOPHAGEAL REFLUX DISEASE
     Route: 048
     Dates: start: 200109, end: 200307
  8. RABEPRAZOLE [Concomitant]
     Indication: GASTROOESOPHAGEAL REFLUX DISEASE
     Route: 048
     Dates: start: 20010917
  9. RANITIDINE [Concomitant]
     Indication: GASTROOESOPHAGEAL REFLUX DISEASE
     Route: 048
     Dates: start: 19980810
  10. RANITIDINE [Concomitant]
     Indication: GASTROOESOPHAGEAL REFLUX DISEASE
     Route: 048
     Dates: start: 200506, end: 200601
  11. GAVISCON CHEW [Concomitant]
     Dosage: 1-2 TAB AFTER MEALS
     Dates: start: 200208, end: 200707
  12. CALCIUM [Concomitant]
  13. NORVASC [Concomitant]
     Indication: HYPERTENSION
  14. LISINOPRIL [Concomitant]
     Indication: HYPERTENSION
     Route: 048
     Dates: start: 20051229
  15. ASPIRIN [Concomitant]
     Indication: CARDIAC DISORDER
     Route: 048
     Dates: start: 19961114
  16. ASPIRIN [Concomitant]
     Indication: CARDIAC DISORDER
     Route: 048
     Dates: start: 20020529
  17. CALCIUM CARB/VIT [Concomitant]
     Indication: MINERAL SUPPLEMENTATION
  18. PRAVASTATIN [Concomitant]
     Indication: BLOOD CHOLESTEROL ABNORMAL
     Dates: start: 19990104
  19. ZETIA [Concomitant]
     Indication: HYPERTENSION
  20. BONIVA [Concomitant]
     Indication: OSTEOPOROSIS
  21. NAPROXEN [Concomitant]
     Indication: PAIN
     Route: 048
     Dates: start: 19980507
  22. FLEXERIL [Concomitant]
     Indication: MUSCLE SPASMS
  23. VIAGRA [Concomitant]
     Indication: ERECTILE DYSFUNCTION
  24. LATANOPROST SOLUTION [Concomitant]
     Indication: INTRACRANIAL PRESSURE INCREASED
  25. IBUPROFEN [Concomitant]
     Route: 048
     Dates: start: 19960209
  26. HYDROCHLOROTHIAZIDE [Concomitant]
     Route: 048
     Dates: start: 20020506
  27. MECLIZINE [Concomitant]
     Route: 048
     Dates: start: 20020319
  28. ADALAT CC [Concomitant]
     Route: 048
     Dates: start: 20010921
  29. FAMOTIDINE [Concomitant]
     Route: 048
     Dates: start: 19960320
  30. ZZCERIVASTATIN [Concomitant]
     Route: 048
     Dates: start: 20010627
  31. ATENOLOL [Concomitant]
     Route: 048
     Dates: start: 20040413
  32. PREDNISONE [Concomitant]
     Route: 048
     Dates: start: 20090909

REACTIONS (4)
  - Intervertebral disc protrusion [Unknown]
  - Osteoporosis [Unknown]
  - Multiple fractures [Unknown]
  - Carpal tunnel syndrome [Unknown]
